FAERS Safety Report 7864477-1 (Version None)
Quarter: 2011Q4

REPORT INFORMATION
  Report Type: 
  Country: None (occurrence: None)
  Receive Date: 20111028
  Receipt Date: 20111020
  Transmission Date: 20120403
  Serious: Yes (Other)
  Sender: FDA-Public Use
  Company Number: PHEH2004US11591

PATIENT
  Sex: Female
  Weight: 80.272 kg

DRUGS (54)
  1. AREDIA [Suspect]
     Indication: METASTASES TO BONE
     Dosage: 90 MG, Q4W
     Dates: start: 20000421, end: 20020216
  2. ZOMETA [Suspect]
     Dosage: 4 MG, Q3W
     Dates: start: 20040225, end: 20050413
  3. CELEXA [Concomitant]
     Indication: DEPRESSION
     Dosage: 20 MG, QD
  4. HERCEPTIN [Concomitant]
  5. MINERALS NOS [Concomitant]
  6. METRONIDAZOLE [Concomitant]
  7. COMPAZINE [Concomitant]
  8. DYAZIDE [Concomitant]
     Indication: OEDEMA
     Dosage: UNK UKN, QD
  9. LASIX [Concomitant]
     Dosage: 40 MG, BID
  10. FEMARA [Concomitant]
     Dosage: 2.5 MG, QD
     Dates: start: 20000915, end: 20030129
  11. CIMETIDINE [Concomitant]
     Dates: start: 20000623
  12. TYLENOL W/ CODEINE [Concomitant]
     Indication: PAIN
  13. VACCINE BREAST CANCER PROTOCOL [Concomitant]
  14. TRAZODONE HYDROCHLORIDE [Concomitant]
  15. CALCIUM W/VITAMIN D NOS [Concomitant]
  16. POTASSIUM CHLORIDE [Concomitant]
     Dosage: 20 MEQ, BID
  17. TAXOL [Concomitant]
     Indication: METASTASIS
     Dates: start: 20000421, end: 20000818
  18. XANAX [Concomitant]
     Indication: DEPRESSION
  19. PREDNISONE [Concomitant]
     Dosage: 5 MG, POST TAXOL INFUSION
  20. ZYBAN [Concomitant]
  21. RADIATION THERAPY [Concomitant]
  22. KEFLEX [Concomitant]
  23. ACETAMINOPHEN AND HYDROCODONE BITARTRATE [Concomitant]
  24. BUPROPION HCL [Concomitant]
  25. KYTRIL [Concomitant]
  26. FASLODEX [Concomitant]
     Dosage: 250 MG, UNK
     Route: 030
  27. HEPARIN [Concomitant]
  28. ZOMETA [Suspect]
     Indication: METASTASES TO BONE
     Dosage: 4 MG, QMO
     Dates: start: 20010101
  29. LOTENSIN [Concomitant]
     Dosage: 20 MG, QD
  30. BENADRYL [Concomitant]
     Dates: start: 20000623
  31. LISINOPRIL [Concomitant]
  32. ADVAIR DISKUS 100/50 [Concomitant]
  33. WARFARIN SODIUM [Concomitant]
  34. SIMVASTATIN [Concomitant]
  35. OXYCONTIN [Concomitant]
     Indication: PAIN
     Dosage: 20 MG, BID
  36. HERCEPTIN [Concomitant]
     Dosage: 4 MG/KG, LOADING DOSE
     Dates: start: 19990801
  37. TAXOTERE [Concomitant]
     Indication: BREAST CANCER
     Dosage: 75 MG/M2, UNK
     Route: 042
     Dates: start: 19990801, end: 20000818
  38. CELEBREX [Concomitant]
  39. ASCORBIC ACID [Concomitant]
  40. ALBUTEROL [Concomitant]
  41. COUMADIN [Concomitant]
     Dosage: UNK UKN, QD
     Route: 048
     Dates: start: 20051019
  42. CEPHALEXIN [Concomitant]
  43. ZOMETA [Suspect]
     Dosage: 4 MG, QW
     Dates: start: 20030129
  44. NAVELBINE [Concomitant]
     Dosage: 30MG/M2 UNKDAY1,8
     Dates: start: 20030129, end: 20040204
  45. VITAMIN B COMPLEX CAP [Concomitant]
  46. HYDROCODONE BITARTRATE [Concomitant]
  47. CYMBALTA [Concomitant]
  48. DEXAMETHASONE [Concomitant]
  49. PREVACID [Concomitant]
     Dosage: 30 MG, QHS
     Route: 048
  50. ZOMETA [Suspect]
     Dosage: UNK UKN, QW3
     Dates: start: 20040801
  51. HERCEPTIN [Concomitant]
     Dosage: 2 MG/KG, EVERY WEEK
  52. LEVAQUIN [Concomitant]
  53. CHLORHEXIDINE GLUCONATE [Concomitant]
  54. PROMETHAZINE [Concomitant]

REACTIONS (72)
  - PAIN [None]
  - INFECTION [None]
  - SWELLING [None]
  - CAPILLARY LEAK SYNDROME [None]
  - ROTATOR CUFF SYNDROME [None]
  - FAMILY STRESS [None]
  - RED BLOOD CELL SEDIMENTATION RATE INCREASED [None]
  - VENTRICULAR HYPOKINESIA [None]
  - NEOPLASM MALIGNANT [None]
  - LEFT ATRIAL DILATATION [None]
  - TRICUSPID VALVE INCOMPETENCE [None]
  - ORAL DISORDER [None]
  - PATHOLOGICAL FRACTURE [None]
  - METASTASES TO LUNG [None]
  - GASTROOESOPHAGEAL REFLUX DISEASE [None]
  - DEPRESSED MOOD [None]
  - HEPATIC CYST [None]
  - KYPHOSIS [None]
  - AORTIC ARTERIOSCLEROSIS [None]
  - RENAL FAILURE CHRONIC [None]
  - IMPLANT SITE THROMBOSIS [None]
  - PAIN IN JAW [None]
  - ANXIETY [None]
  - EXOSTOSIS [None]
  - HEART RATE DECREASED [None]
  - GLOMERULAR FILTRATION RATE ABNORMAL [None]
  - COMPUTERISED TOMOGRAM CORONARY ARTERY ABNORMAL [None]
  - METASTASES TO SPINE [None]
  - DYSPHAGIA [None]
  - BURSITIS [None]
  - VITAMIN D DEFICIENCY [None]
  - PERICARDIAL EFFUSION [None]
  - C-REACTIVE PROTEIN INCREASED [None]
  - OSTEOMYELITIS [None]
  - PRIMARY SEQUESTRUM [None]
  - BLOOD CREATININE INCREASED [None]
  - SINUS TACHYCARDIA [None]
  - VOMITING [None]
  - CARDIOMEGALY [None]
  - ATELECTASIS [None]
  - SINUSITIS [None]
  - BONE SWELLING [None]
  - ERYTHEMA [None]
  - BONE LESION [None]
  - IMPAIRED HEALING [None]
  - METASTASES TO BONE [None]
  - FALL [None]
  - METASTASES TO BONE MARROW [None]
  - OBESITY [None]
  - DIARRHOEA [None]
  - NAUSEA [None]
  - OSTEOARTHRITIS [None]
  - COMPRESSION FRACTURE [None]
  - DIASTOLIC DYSFUNCTION [None]
  - BONE DISORDER [None]
  - HAEMORRHAGE [None]
  - HYPERPLASIA [None]
  - BONE ABSCESS [None]
  - INFLAMMATION [None]
  - PLEURAL EFFUSION [None]
  - HAEMORRHOIDS [None]
  - EJECTION FRACTION ABNORMAL [None]
  - OSTEONECROSIS OF JAW [None]
  - TRISMUS [None]
  - TOOTH DISORDER [None]
  - GINGIVAL RECESSION [None]
  - GINGIVAL DISORDER [None]
  - ANAEMIA [None]
  - OSTEITIS DEFORMANS [None]
  - MITRAL VALVE INCOMPETENCE [None]
  - HYPERCHOLESTEROLAEMIA [None]
  - INTERVERTEBRAL DISC DEGENERATION [None]
